FAERS Safety Report 20044270 (Version 1)
Quarter: 2021Q4

REPORT INFORMATION
  Report Type: Spontaneous
  Country: DE (occurrence: None)
  Receive Date: 20211108
  Receipt Date: 20211108
  Transmission Date: 20220303
  Serious: Yes (Other)
  Sender: FDA-Public Use
  Company Number: 2021A794042

PATIENT

DRUGS (1)
  1. DURVALUMAB [Suspect]
     Active Substance: DURVALUMAB
     Route: 042

REACTIONS (8)
  - Oesophagitis [Unknown]
  - Hypothyroidism [Unknown]
  - Cough [Unknown]
  - Dyspnoea exertional [Unknown]
  - Lung infiltration [Recovering/Resolving]
  - Inflammation [Unknown]
  - Weight increased [Unknown]
  - Performance status decreased [Unknown]

NARRATIVE: CASE EVENT DATE: 20210801
